FAERS Safety Report 7323964-5 (Version None)
Quarter: 2011Q1

REPORT INFORMATION
  Report Type: 
  Country: None (occurrence: None)
  Receive Date: 20110301
  Receipt Date: 20110218
  Transmission Date: 20110831
  Serious: Yes (Hospitalization)
  Sender: FDA-Public Use
  Company Number: B0702544A

PATIENT
  Sex: Male
  Weight: 85.4 kg

DRUGS (7)
  1. SOLU-CORTEF [Concomitant]
     Dosage: 250MG TWICE PER DAY
     Route: 042
     Dates: start: 20100713, end: 20100714
  2. ZOCOR [Concomitant]
     Dosage: 20MG PER DAY
     Dates: start: 20050811
  3. AUGMENTIN '125' [Suspect]
     Dosage: 375MG THREE TIMES PER DAY
     Route: 048
     Dates: start: 20100713, end: 20100721
  4. HYDROCORTISONE [Concomitant]
     Dosage: 5MG TWICE PER DAY
     Dates: start: 20050812
  5. TESTOSTERONE [Concomitant]
     Indication: HYPOGONADISM
     Dates: start: 20000224
  6. GENOTROPIN [Suspect]
     Dosage: .3MG PER DAY
     Route: 042
     Dates: start: 19950704
  7. NEBIDO [Concomitant]
     Indication: HORMONE LEVEL ABNORMAL
     Dosage: 1G EVERY TWO WEEKS
     Route: 030
     Dates: start: 20090902

REACTIONS (1)
  - GASTROENTERITIS [None]
